FAERS Safety Report 13174892 (Version 1)
Quarter: 2017Q1

REPORT INFORMATION
  Report Type: Spontaneous
  Country: US (occurrence: US)
  Receive Date: 20170201
  Receipt Date: 20170201
  Transmission Date: 20170428
  Serious: No
  Sender: FDA-Public Use
  Company Number: US-ABBVIE-16P-163-1608584-00

PATIENT

DRUGS (1)
  1. HUMIRA [Suspect]
     Active Substance: ADALIMUMAB
     Indication: PSORIATIC ARTHROPATHY
     Route: 058

REACTIONS (6)
  - Inflammation [Unknown]
  - Joint swelling [Unknown]
  - Arthritis [Unknown]
  - Fungal skin infection [Unknown]
  - Pain in extremity [Unknown]
  - Weight decreased [Unknown]
